FAERS Safety Report 4644594-X (Version None)
Quarter: 2005Q2

REPORT INFORMATION
  Report Type: 
  Country: None (occurrence: None)
  Receive Date: 20050331
  Receipt Date: 20050105
  Transmission Date: 20051028
  Serious: No
  Sender: FDA-Public Use
  Company Number: 03P-163-0246068-00

PATIENT
  Age: 75 Year
  Sex: Female
  Weight: 56.6996 kg

DRUGS (16)
  1. HUMIRA [Suspect]
     Indication: RHEUMATOID ARTHRITIS
     Dosage: 40 MG, 1 IN 2 WK, SUBCUTANEOUS
     Route: 058
     Dates: start: 20031213
  2. PREDNISONE [Concomitant]
  3. BISOPROLOL FUMARATE [Concomitant]
  4. HYZAAR [Concomitant]
  5. ESTROGENS CONJUGATED [Concomitant]
  6. LEVOTHYROXINE SODIUM [Concomitant]
  7. SERTRALINE HYDROCHLORIDE [Concomitant]
  8. ACETYL SALICYLIC ACID USP BAT [Concomitant]
  9. VITAMINS [Concomitant]
  10. POTASSIUM CHLORIDE [Concomitant]
  11. ACETYL SALICYLIC ACID USP BAT [Concomitant]
  12. LEVACIN [Concomitant]
  13. IMODIUM [Concomitant]
  14. DIPHENHYDRAMINE HCL [Concomitant]
  15. SINGULAIR [Concomitant]
  16. ALPRAZOLAM [Concomitant]

REACTIONS (1)
  - INJECTION SITE PAIN [None]
